FAERS Safety Report 5025643-6 (Version None)
Quarter: 2006Q2

REPORT INFORMATION
  Report Type: 
  Country: None (occurrence: None)
  Receive Date: 20060614
  Receipt Date: 20060522
  Transmission Date: 20061013
  Serious: Yes (Life-Threatening, Hospitalization)
  Sender: FDA-Public Use
  Company Number: DE-AVENTIS-200611513DE

PATIENT
  Age: 52 Year
  Sex: Female
  Weight: 80 kg

DRUGS (4)
  1. TAXOTERE [Suspect]
     Indication: OVARIAN CANCER
     Route: 042
     Dates: start: 20060511, end: 20060511
  2. FORTECORTIN [Concomitant]
     Indication: PROPHYLAXIS OF NAUSEA AND VOMITING
     Dates: start: 20060501, end: 20060501
  3. PLATINUM COMPOUNDS NOS [Concomitant]
     Indication: OVARIAN CANCER
     Dosage: DOSE: AUT5
     Dates: start: 20060501, end: 20060501
  4. KEVATRIL [Concomitant]
     Indication: PROPHYLAXIS OF NAUSEA AND VOMITING
     Dates: start: 20060501, end: 20060501

REACTIONS (12)
  - BLOOD CREATINE PHOSPHOKINASE INCREASED [None]
  - BLOOD LACTATE DEHYDROGENASE INCREASED [None]
  - CACHEXIA [None]
  - CARDIOMYOPATHY [None]
  - DIALYSIS [None]
  - EJECTION FRACTION DECREASED [None]
  - FLUID RETENTION [None]
  - GENERALISED OEDEMA [None]
  - MYALGIA [None]
  - MYOSITIS [None]
  - PARANEOPLASTIC SYNDROME [None]
  - TUMOUR LYSIS SYNDROME [None]
